APPROVED DRUG PRODUCT: AMMONIA N 13
Active Ingredient: AMMONIA N-13
Strength: 3.75mCi-260mCi/ML
Dosage Form/Route: INJECTABLE;INTRAVENOUS
Application: A204547 | Product #001 | TE Code: AP
Applicant: PRECISION NUCLEAR LLC
Approved: Aug 14, 2015 | RLD: No | RS: No | Type: RX